FAERS Safety Report 5492843-0 (Version None)
Quarter: 2007Q4

REPORT INFORMATION
  Report Type: 
  Country: None (occurrence: None)
  Receive Date: 20071023
  Receipt Date: 20060929
  Transmission Date: 20080405
  Serious: No
  Sender: FDA-Public Use
  Company Number: US-BRISTOL-MYERS SQUIBB COMPANY-13526041

PATIENT
  Age: 25 Year
  Sex: Male
  Weight: 85 kg

DRUGS (1)
  1. BUSPAR [Suspect]
     Indication: SCHIZOPHRENIA
     Dates: start: 20060810

REACTIONS (7)
  - CHEST DISCOMFORT [None]
  - DIZZINESS [None]
  - FEAR [None]
  - FEELING ABNORMAL [None]
  - HEART RATE INCREASED [None]
  - RESPIRATORY RATE INCREASED [None]
  - SOMNOLENCE [None]
